FAERS Safety Report 4370863-7 (Version None)
Quarter: 2004Q2

REPORT INFORMATION
  Report Type: 
  Country: None (occurrence: None)
  Receive Date: 20040526
  Receipt Date: 20040514
  Transmission Date: 20050107
  Serious: Yes (Hospitalization)
  Sender: FDA-Public Use
  Company Number: HQWYE680303MAY04

PATIENT
  Age: 35 Year
  Sex: Male

DRUGS (5)
  1. RAPAMUNE [Suspect]
     Indication: PROPHYLAXIS AGAINST TRANSPLANT REJECTION
     Dosage: 2 MG 1X PER 1 DAY
     Route: 048
     Dates: start: 20021023
  2. LOSARTAN (LOSARTAN) [Concomitant]
  3. CARVEDILOL [Concomitant]
  4. PREDNISONE TAB [Concomitant]
  5. MYCOPHENOLATE MOFETIL (MYCOPHENOLATE MOFETIL) [Concomitant]

REACTIONS (3)
  - MENINGITIS ASEPTIC [None]
  - PAPILLOEDEMA [None]
  - PLEOCYTOSIS [None]
